FAERS Safety Report 20021556 (Version 1)
Quarter: 2021Q4

REPORT INFORMATION
  Report Type: Report from Study
  Country: US (occurrence: US)
  Receive Date: 20211101
  Receipt Date: 20211101
  Transmission Date: 20220303
  Serious: Yes (Other)
  Sender: FDA-Public Use
  Company Number: US-JAZZ-2021-US-012604

PATIENT
  Sex: Male

DRUGS (5)
  1. XYWAV [Suspect]
     Active Substance: CALCIUM OXYBATE\MAGNESIUM OXYBATE\POTASSIUM OXYBATE\SODIUM OXYBATE
     Indication: Narcolepsy
     Dosage: 4.5 GRAM, BID
     Route: 048
     Dates: start: 202105, end: 202108
  2. PROVIGIL [Suspect]
     Active Substance: MODAFINIL
     Indication: Product used for unknown indication
  3. ARIMIDEX [Concomitant]
     Active Substance: ANASTROZOLE
  4. TESTOSTERONE [Concomitant]
     Active Substance: TESTOSTERONE
  5. TRINTELLIX [Concomitant]
     Active Substance: VORTIOXETINE HYDROBROMIDE
     Dosage: 20 MILLIGRAM, QD
     Route: 048

REACTIONS (5)
  - Joint injury [Unknown]
  - Fall [Recovered/Resolved]
  - Radiculopathy [Not Recovered/Not Resolved]
  - Drug hypersensitivity [Not Recovered/Not Resolved]
  - Pre-existing condition improved [Unknown]

NARRATIVE: CASE EVENT DATE: 20210101
